FAERS Safety Report 15740846 (Version 3)
Quarter: 2019Q2

REPORT INFORMATION
  Report Type: Report from Study
  Country: FR (occurrence: FR)
  Receive Date: 20181219
  Receipt Date: 20190410
  Transmission Date: 20190711
  Serious: Yes (Hospitalization, Other)
  Sender: FDA-Public Use
  Company Number: PHHY2018FR187750

PATIENT
  Age: 46 Year
  Sex: Male

DRUGS (12)
  1. PROGRAF [Concomitant]
     Active Substance: TACROLIMUS\TACROLIMUS ANHYDROUS
     Dosage: 15 MG, UNK
     Route: 065
     Dates: start: 20180523
  2. TEMERIT [Concomitant]
     Active Substance: NEBIVOLOL
     Indication: HYPERTENSION
     Dosage: 1 DF, UNK
     Route: 065
     Dates: start: 20131113
  3. AUGMENTIN [Concomitant]
     Active Substance: AMOXICILLIN\CLAVULANATE POTASSIUM
     Indication: LUNG INFECTION
     Dosage: 3 G, QD
     Route: 065
     Dates: start: 20180403, end: 20180411
  4. PROGRAF [Concomitant]
     Active Substance: TACROLIMUS\TACROLIMUS ANHYDROUS
     Indication: IMMUNOSUPPRESSANT DRUG THERAPY
     Dosage: 3 MG, UNK
     Route: 065
     Dates: start: 20141203, end: 20150311
  5. PROGRAF [Concomitant]
     Active Substance: TACROLIMUS\TACROLIMUS ANHYDROUS
     Dosage: 3 MG, UNK
     Route: 065
     Dates: start: 20160303, end: 20161012
  6. DUOPLAVIN [Concomitant]
     Active Substance: ASPIRIN\CLOPIDOGREL
     Indication: PROPHYLAXIS
     Dosage: 1 DF (75 MG/75 MG), QD
     Route: 065
     Dates: start: 20170215
  7. MYFORTIC [Suspect]
     Active Substance: MYCOPHENOLATE SODIUM
     Indication: LIVER TRANSPLANT
     Dosage: 1440 MG, QD
     Route: 048
     Dates: start: 20140612
  8. NO TREATMENT RECEIVED [Suspect]
     Active Substance: UNSPECIFIED INGREDIENT
     Indication: PRODUCT USED FOR UNKNOWN INDICATION
     Dosage: UNK
     Route: 065
  9. PROGRAF [Concomitant]
     Active Substance: TACROLIMUS\TACROLIMUS ANHYDROUS
     Dosage: 2.5 MG, UNK
     Route: 065
     Dates: start: 20150312, end: 20160302
  10. PROGRAF [Concomitant]
     Active Substance: TACROLIMUS\TACROLIMUS ANHYDROUS
     Dosage: 2 MG, UNK
     Route: 065
     Dates: start: 20170615
  11. PROGRAF [Concomitant]
     Active Substance: TACROLIMUS\TACROLIMUS ANHYDROUS
     Dosage: 2.5 MG, UNK
     Route: 065
     Dates: start: 20161013, end: 20170614
  12. MYFORTIC [Suspect]
     Active Substance: MYCOPHENOLATE SODIUM
     Indication: IMMUNOSUPPRESSANT DRUG THERAPY

REACTIONS (17)
  - Diarrhoea [Recovered/Resolved]
  - Endocarditis [Recovered/Resolved]
  - Acute kidney injury [Recovered/Resolved]
  - Diabetes mellitus inadequate control [Recovered/Resolved]
  - Organising pneumonia [Recovered/Resolved]
  - Dyspnoea [Not Recovered/Not Resolved]
  - Oedema peripheral [Recovered/Resolved]
  - Infection [Recovered/Resolved]
  - Lung infection [Recovered/Resolved]
  - Emphysema [Recovered/Resolved]
  - Vomiting [Recovered/Resolved]
  - Blood creatinine increased [Unknown]
  - Prostatitis [Recovered/Resolved]
  - Tricuspid valve incompetence [Recovered/Resolved]
  - Glomerulonephritis [Recovered/Resolved]
  - Leukocytosis [Recovered/Resolved]
  - Pleural effusion [Recovered/Resolved]

NARRATIVE: CASE EVENT DATE: 20161012
